FAERS Safety Report 14278796 (Version 1)
Quarter: 2017Q4

REPORT INFORMATION
  Report Type: Report from Study
  Country: US (occurrence: US)
  Receive Date: 20171212
  Receipt Date: 20171212
  Transmission Date: 20180321
  Serious: Yes (Other)
  Sender: FDA-Public Use
  Company Number: US-MYLANLABS-2017M1076985

PATIENT

DRUGS (2)
  1. REGORAFENIB [Interacting]
     Active Substance: REGORAFENIB
     Indication: HEPATOCELLULAR CARCINOMA
     Dosage: 160 MG DAILY ADMINISTERED FOR FIRST 21 DAYS OF THE 28 DAY CYCLE
     Route: 048
  2. LITHIUM. [Suspect]
     Active Substance: LITHIUM
     Indication: BIPOLAR DISORDER
     Dosage: UNK
     Route: 065

REACTIONS (7)
  - Toxicity to various agents [Recovered/Resolved]
  - Fatigue [Recovered/Resolved]
  - Alanine aminotransferase increased [Recovered/Resolved]
  - Acute kidney injury [Recovered/Resolved]
  - Drug interaction [Recovered/Resolved]
  - Encephalopathy [Recovered/Resolved]
  - Aspartate aminotransferase increased [Recovered/Resolved]
